FAERS Safety Report 7799180-X (Version None)
Quarter: 2011Q4

REPORT INFORMATION
  Report Type: 
  Country: None (occurrence: None)
  Receive Date: 20111006
  Receipt Date: 20110929
  Transmission Date: 20120403
  Serious: Yes (Hospitalization)
  Sender: FDA-Public Use
  Company Number: FR-PFIZER INC-2011178433

PATIENT
  Age: 64 Year
  Sex: Male
  Weight: 75 kg

DRUGS (4)
  1. ACETAMINOPHEN [Concomitant]
     Indication: MYALGIA
     Dosage: UNK
     Route: 048
     Dates: start: 20110628
  2. ZOLPIDEM [Concomitant]
     Indication: SLEEP DISORDER
     Dosage: UNK
     Route: 048
     Dates: start: 20110628
  3. INNOHEP [Concomitant]
     Indication: THROMBOSIS
     Dosage: 0.7, UNK
     Route: 058
     Dates: start: 20110512
  4. SUTENT [Suspect]
     Indication: RENAL CANCER METASTATIC
     Dosage: 50 MG, 1X/DAY
     Dates: start: 20110518

REACTIONS (2)
  - PLEURAL EFFUSION [None]
  - ATELECTASIS [None]
